FAERS Safety Report 4776154-4 (Version None)
Quarter: 2005Q3

REPORT INFORMATION
  Report Type: 
  Country: None (occurrence: None)
  Receive Date: 20050914
  Receipt Date: 20050322
  Transmission Date: 20060218
  Serious: Yes (Death)
  Sender: FDA-Public Use
  Company Number: 163-20785-05030662

PATIENT
  Age: 64 Year
  Sex: Male

DRUGS (1)
  1. THALOMID(THALIDOMIDE) (50 MILLIGRAM, CAPSULES) [Suspect]
     Indication: DRUG USE FOR UNKNOWN INDICATION
     Dosage: 100MG DAILY, ORAL
     Route: 048
     Dates: start: 20050106, end: 20050101

REACTIONS (1)
  - DEATH [None]
